FAERS Safety Report 4712719-3 (Version None)
Quarter: 2005Q3

REPORT INFORMATION
  Report Type: 
  Country: None (occurrence: None)
  Receive Date: 20050701
  Receipt Date: 20050421
  Transmission Date: 20060218
  Serious: Yes (Other)
  Sender: FDA-Public Use
  Company Number: 2005064952

PATIENT
  Age: 10 Year
  Sex: Male

DRUGS (4)
  1. ZOLOFT [Suspect]
     Indication: OPPOSITIONAL DEFIANT DISORDER
     Dosage: (25 MG), ORAL
     Route: 048
     Dates: start: 20050201
  2. DESMOPRESSIN (DESMOPRESSIN) [Concomitant]
  3. ALL OTHER THERAPEUTIC PRODUCTS (ALL OTHER THERAPEUTIC PRODUCTS) [Concomitant]
  4. ATOMOXETINE HYDROCHLORIDE (ATOMOXETINE HYDROCHLORIDE) [Concomitant]

REACTIONS (2)
  - HOMICIDAL IDEATION [None]
  - MOOD SWINGS [None]
